FAERS Safety Report 5082497-X (Version None)
Quarter: 2006Q3

REPORT INFORMATION
  Report Type: 
  Country: None (occurrence: None)
  Receive Date: 20060817
  Receipt Date: 20060809
  Transmission Date: 20061208
  Serious: Yes (Death, Life-Threatening, Hospitalization, Other)
  Sender: FDA-Public Use
  Company Number: US-JNJFOC-20051104999

PATIENT
  Sex: Female
  Weight: 99.79 kg

DRUGS (18)
  1. DURAGESIC-100 [Suspect]
     Route: 062
  2. DURAGESIC-100 [Suspect]
     Route: 062
  3. DURAGESIC-100 [Suspect]
     Route: 062
  4. DURAGESIC-100 [Suspect]
     Route: 062
  5. DURAGESIC-100 [Suspect]
     Indication: PAIN
     Route: 062
  6. CLOTRIMAZOLE [Concomitant]
  7. ESOMEPRAZOLE MAGNESIUM [Concomitant]
  8. FLUOXETINE [Concomitant]
     Route: 048
  9. FLUOXETINE [Concomitant]
     Route: 048
  10. FUROSEMIDE [Concomitant]
  11. PREDNISONE [Concomitant]
     Dosage: 40 MG DAILY, ORAL
     Route: 048
  12. TRAZODONE HCL [Concomitant]
  13. CLOBETASOL PROPIONATE [Concomitant]
     Dosage: 0.05%, APPLIED DAILY
     Route: 061
  14. MORPHINE SULFATE [Concomitant]
     Dosage: 15 MG, 4 TO 5 EVERY 4 HOURS
     Route: 048
  15. CYCLOBENZAPRINE HCL [Concomitant]
     Route: 048
  16. LEVOFLOXACIN [Concomitant]
  17. MOXIFLOXACIN HCL [Concomitant]
  18. OXYGEN [Concomitant]

REACTIONS (39)
  - ACUTE RESPIRATORY DISTRESS SYNDROME [None]
  - ATRIAL FIBRILLATION [None]
  - ATRIOVENTRICULAR BLOCK THIRD DEGREE [None]
  - BACTEROIDES INFECTION [None]
  - BRAIN OEDEMA [None]
  - BRONCHOPNEUMONIA [None]
  - BURNS SECOND DEGREE [None]
  - CANDIDIASIS [None]
  - CARDIO-RESPIRATORY ARREST [None]
  - CARDIOMEGALY [None]
  - CHEST PAIN [None]
  - COMA [None]
  - CONFUSIONAL STATE [None]
  - DEVICE LEAKAGE [None]
  - DISTURBANCE IN ATTENTION [None]
  - FATIGUE [None]
  - KLEBSIELLA INFECTION [None]
  - LOSS OF CONSCIOUSNESS [None]
  - MYOCARDIAL ISCHAEMIA [None]
  - OEDEMA PERIPHERAL [None]
  - OVERDOSE [None]
  - PELVIC FRACTURE [None]
  - PHARMACEUTICAL PRODUCT COMPLAINT [None]
  - PNEUMONIA BACTERIAL [None]
  - PNEUMONIA PNEUMOCOCCAL [None]
  - POOR QUALITY DRUG ADMINISTERED [None]
  - PROPIONIBACTERIUM INFECTION [None]
  - PULMONARY OEDEMA [None]
  - PULSE ABSENT [None]
  - RENAL FAILURE ACUTE [None]
  - RESPIRATORY FAILURE [None]
  - SEPTIC SHOCK [None]
  - SINUS TACHYCARDIA [None]
  - SOMNOLENCE [None]
  - STAPHYLOCOCCAL INFECTION [None]
  - THERAPY NON-RESPONDER [None]
  - UPPER RESPIRATORY TRACT INFECTION [None]
  - URINARY INCONTINENCE [None]
  - VISION BLURRED [None]
